FAERS Safety Report 17922429 (Version 1)
Quarter: 2020Q2

REPORT INFORMATION
  Report Type: Spontaneous
  Country: US (occurrence: US)
  Receive Date: 20200620
  Receipt Date: 20200620
  Transmission Date: 20200714
  Serious: Yes (Other)
  Sender: FDA-Public Use
  Company Number: None

PATIENT
  Age: 45 Year
  Sex: Male

DRUGS (3)
  1. VITAMIN D 50,000 UNIT [Concomitant]
     Dates: start: 20200417
  2. TESTOSTERONE 1.62% GEL [Suspect]
     Active Substance: TESTOSTERONE
     Indication: BLOOD TESTOSTERONE DECREASED
     Route: 061
     Dates: start: 20200618, end: 20200619
  3. OMEGA-3-ACID ETHYL ESTERS 1GRAM [Concomitant]
     Dates: start: 20200417

REACTIONS (4)
  - Pyrexia [None]
  - Dyspnoea [None]
  - Blood pressure increased [None]
  - Vomiting [None]

NARRATIVE: CASE EVENT DATE: 20200618
